FAERS Safety Report 8382587-X (Version None)
Quarter: 2012Q2

REPORT INFORMATION
  Report Type: 
  Country: None (occurrence: None)
  Receive Date: 20120524
  Receipt Date: 20120521
  Transmission Date: 20120825
  Serious: Yes (Death)
  Sender: FDA-Public Use
  Company Number: PHHY2011BR87430

PATIENT
  Sex: Female
  Weight: 59 kg

DRUGS (2)
  1. EXELON [Suspect]
     Indication: VASCULAR DEMENTIA
     Dosage: 4.6 MG/ 24HRS
     Route: 062
  2. EXELON [Suspect]
     Dosage: 9.5 MG/ 24 HRS
     Route: 062
     Dates: start: 20110801

REACTIONS (3)
  - INTESTINAL OBSTRUCTION [None]
  - VISUAL IMPAIRMENT [None]
  - SEPTIC SHOCK [None]
